FAERS Safety Report 4982125-5 (Version None)
Quarter: 2006Q2

REPORT INFORMATION
  Report Type: 
  Country: None (occurrence: None)
  Receive Date: 20060425
  Receipt Date: 20051123
  Transmission Date: 20061013
  Serious: Yes (Hospitalization, Disabling)
  Sender: FDA-Public Use
  Company Number: US-MERCK-0511USA04267

PATIENT
  Age: 38 Year
  Sex: Female
  Weight: 61 kg

DRUGS (8)
  1. VIOXX [Suspect]
     Indication: PAIN IN EXTREMITY
     Route: 048
     Dates: start: 20011118, end: 20020101
  2. ALTACE [Concomitant]
     Route: 065
  3. PRILOSEC [Concomitant]
     Route: 065
  4. NORVASC [Concomitant]
     Route: 065
  5. NEURONTIN [Concomitant]
     Route: 065
  6. CELEBREX [Concomitant]
     Route: 065
  7. [THERAPY UNSPECIFIED] [Concomitant]
     Route: 065
  8. EFFEXOR [Concomitant]
     Route: 065

REACTIONS (6)
  - ANXIETY [None]
  - CARDIAC DISORDER [None]
  - CEREBROVASCULAR ACCIDENT [None]
  - DEPRESSION [None]
  - HAEMORRHAGIC STROKE [None]
  - PAIN [None]
